FAERS Safety Report 16387976 (Version 1)
Quarter: 2019Q2

REPORT INFORMATION
  Report Type: Spontaneous
  Country: US (occurrence: US)
  Receive Date: 20190426
  Receipt Date: 20190426
  Transmission Date: 20190711
  Serious: Yes (Hospitalization)
  Sender: FDA-Public Use
  Company Number: None

PATIENT
  Age: 69 Year
  Sex: Female
  Weight: 65.63 kg

DRUGS (2)
  1. CYCLOPHOSPHAMIDE. [Suspect]
     Active Substance: CYCLOPHOSPHAMIDE
     Dates: end: 20190408
  2. CYTARABINE. [Suspect]
     Active Substance: CYTARABINE
     Dates: end: 20190412

REACTIONS (5)
  - Nausea [None]
  - Abdominal pain [None]
  - Vomiting [None]
  - Neutrophil count decreased [None]
  - Clostridium difficile infection [None]

NARRATIVE: CASE EVENT DATE: 20190409
